FAERS Safety Report 6341441-5 (Version None)
Quarter: 2009Q3

REPORT INFORMATION
  Report Type: 
  Country: None (occurrence: None)
  Receive Date: 20090904
  Receipt Date: 20090825
  Transmission Date: 20100115
  Serious: Yes (Hospitalization)
  Sender: FDA-Public Use
  Company Number: FR-SANOFI-SYNTHELABO-A02200902223

PATIENT
  Sex: Male

DRUGS (2)
  1. PREVISCAN [Interacting]
     Indication: ARTERIAL DISORDER
     Dosage: 15 MG ODD DAYS, 20 MG EVEN DAYS
     Route: 048
     Dates: start: 20090101, end: 20090615
  2. PLAVIX [Suspect]
     Indication: ARTERIAL DISORDER
     Route: 048

REACTIONS (6)
  - ASTHENIA [None]
  - DRUG INTERACTION [None]
  - HAEMORRHAGIC ANAEMIA [None]
  - HYPOTENSION [None]
  - INTERNATIONAL NORMALISED RATIO INCREASED [None]
  - MELAENA [None]
